FAERS Safety Report 4360045-7 (Version None)
Quarter: 2004Q2

REPORT INFORMATION
  Report Type: 
  Country: None (occurrence: None)
  Receive Date: 20040513
  Receipt Date: 20040504
  Transmission Date: 20050107
  Serious: Yes (Hospitalization)
  Sender: FDA-Public Use
  Company Number: CIP04000926

PATIENT
  Age: 60 Year
  Sex: Female

DRUGS (1)
  1. ASACOL [Suspect]
     Indication: COLITIS
     Dosage: 800 MG THREE TIMES DAILY, ORAL
     Route: 048
     Dates: start: 20040322

REACTIONS (4)
  - COLON CANCER [None]
  - POLYP [None]
  - RECTAL HAEMORRHAGE [None]
  - STAPHYLOCOCCAL INFECTION [None]
